FAERS Safety Report 5490160-6 (Version None)
Quarter: 2007Q4

REPORT INFORMATION
  Report Type: 
  Country: None (occurrence: None)
  Receive Date: 20071018
  Receipt Date: 20071016
  Transmission Date: 20080405
  Serious: Yes (Other)
  Sender: FDA-Public Use
  Company Number: US-BOEHRINGER INGELHEIM PHARMACEUTICALS, INC.-2003-BP-04111BP

PATIENT
  Sex: Male
  Weight: 94 kg

DRUGS (12)
  1. MICARDIS [Suspect]
     Indication: CARDIOVASCULAR DISORDER
     Route: 048
     Dates: start: 20021115
  2. MICARDIS [Suspect]
     Indication: CEREBROVASCULAR ACCIDENT PROPHYLAXIS
  3. NIASPAN [Concomitant]
  4. TOPROL-XL [Concomitant]
  5. ZOCOR [Concomitant]
  6. ECOTRIN [Concomitant]
  7. ALLEGRA [Concomitant]
  8. AZOPT [Concomitant]
  9. PREVACID [Concomitant]
  10. LUMIGAN [Concomitant]
  11. LEXAPRO [Concomitant]
  12. ALPHAGAN [Concomitant]

REACTIONS (2)
  - AORTIC DILATATION [None]
  - HYPERTENSION [None]
